FAERS Safety Report 17422621 (Version 2)
Quarter: 2020Q1

REPORT INFORMATION
  Report Type: Report from Study
  Country: US (occurrence: US)
  Receive Date: 20200215
  Receipt Date: 20200228
  Transmission Date: 20200409
  Serious: No
  Sender: FDA-Public Use
  Company Number: US-SHIRE-US202005914

PATIENT
  Sex: Female

DRUGS (2)
  1. CLARITIN ALLERGIC [Concomitant]
     Indication: SWELLING
  2. TAKHZYRO [Suspect]
     Active Substance: LANADELUMAB-FLYO
     Indication: PRODUCT USED FOR UNKNOWN INDICATION
     Dosage: 300 MILLIGRAM, 1X/2WKS
     Route: 058

REACTIONS (1)
  - Hereditary angioedema [Recovering/Resolving]
